FAERS Safety Report 9136986 (Version 5)
Quarter: 2013Q4

REPORT INFORMATION
  Report Type: Spontaneous
  Country: FR (occurrence: FR)
  Receive Date: 20130304
  Receipt Date: 20131107
  Transmission Date: 20140711
  Serious: Yes (Other)
  Sender: FDA-Public Use
  Company Number: FR-JHP PHARMACEUTICALS, LLC-JHP201200203

PATIENT
  Age: 40 Year
  Sex: Male

DRUGS (11)
  1. DANTRIUM [Suspect]
     Indication: PRODUCT USED FOR UNKNOWN INDICATION
     Dosage: 100 MG, TID
     Route: 048
     Dates: start: 201010, end: 20120215
  2. BACLOFEN [Suspect]
     Indication: PRODUCT USED FOR UNKNOWN INDICATION
     Dosage: 120 MG, DAILY
     Route: 048
     Dates: start: 201010
  3. CERIS [Suspect]
     Indication: PRODUCT USED FOR UNKNOWN INDICATION
     Dosage: 20 MG, BID
     Route: 048
     Dates: start: 201010
  4. SERTRALINE [Suspect]
     Indication: PRODUCT USED FOR UNKNOWN INDICATION
     Dosage: 1 DF, DAILY
     Route: 048
     Dates: start: 201012
  5. SORIATANE [Suspect]
     Indication: PRODUCT USED FOR UNKNOWN INDICATION
     Dosage: UNK
     Route: 048
     Dates: start: 20110815, end: 20111213
  6. CURACNE [Suspect]
     Dosage: 20 MG, DAILY
     Route: 048
     Dates: start: 20111213, end: 20120123
  7. CURACNE [Suspect]
     Dosage: 30 MG, DAILY
     Route: 048
     Dates: start: 20120123
  8. CURACNE [Suspect]
     Dosage: 20 MG, DAILY
     Route: 048
  9. CURACNE [Suspect]
     Dosage: 25 MG, DAILY
     Route: 048
  10. CURACNE [Suspect]
     Dosage: 30 MG, DAILY
     Route: 048
  11. CURACNE [Suspect]
     Dosage: 20 MG, DAILY
     Route: 048

REACTIONS (3)
  - Psoriasis [Recovering/Resolving]
  - Acne [Recovering/Resolving]
  - Acne [Recovering/Resolving]
